FAERS Safety Report 13339589 (Version 2)
Quarter: 2020Q1

REPORT INFORMATION
  Report Type: Report from Study
  Country: FR (occurrence: FR)
  Receive Date: 20170315
  Receipt Date: 20200130
  Transmission Date: 20200409
  Serious: Yes (Hospitalization)
  Sender: FDA-Public Use
  Company Number: FR-ROCHE-1902418

PATIENT
  Age: 81 Year
  Sex: Male

DRUGS (8)
  1. SECTRAL [Concomitant]
     Active Substance: ACEBUTOLOL HYDROCHLORIDE
  2. INNOVAIR [Concomitant]
     Active Substance: BECLOMETHASONE DIPROPIONATE\FORMOTEROL
  3. SURBRONC [Concomitant]
     Active Substance: AMBROXOL HYDROCHLORIDE
  4. IPRATROPIUM BROMIDE\FENOTEROL HYDROBROMIDE [Concomitant]
     Active Substance: FENOTEROL HYDROBROMIDE\IPRATROPIUM BROMIDE
  5. LESCOL [Concomitant]
     Active Substance: FLUVASTATIN SODIUM
  6. AXELER [Concomitant]
     Active Substance: AMLODIPINE BESYLATE\OLMESARTAN MEDOXOMIL
  7. ATEZOLIZUMAB. [Suspect]
     Active Substance: ATEZOLIZUMAB
     Indication: BLADDER TRANSITIONAL CELL CARCINOMA
     Dosage: THE EVENT OCCURED DURING INFUSION OF ATEZOLIZUMAB- PATIENT RECEIVED 720MG
     Route: 042
     Dates: start: 20170223, end: 20170223
  8. SOLIFENACINE [SOLIFENACIN] [Concomitant]

REACTIONS (3)
  - Hypertension [Recovered/Resolved]
  - Respiratory failure [Recovered/Resolved]
  - Pyrexia [Recovered/Resolved]

NARRATIVE: CASE EVENT DATE: 20170223
